FAERS Safety Report 6245029-6 (Version None)
Quarter: 2009Q2

REPORT INFORMATION
  Report Type: 
  Country: None (occurrence: None)
  Receive Date: 20090619
  Receipt Date: 20090123
  Transmission Date: 20091009
  Serious: Yes (Hospitalization)
  Sender: FDA-Public Use
  Company Number: 2009PL000096

PATIENT
  Age: 52 Year
  Sex: Female
  Weight: 80.3 kg

DRUGS (10)
  1. IMURAN [Suspect]
     Indication: CROHN'S DISEASE
     Dosage: 2.5 MG/KG;QD;PO
     Route: 048
     Dates: start: 20060501, end: 20060524
  2. AZATHIOPRINE [Suspect]
     Indication: CROHN'S DISEASE
     Dosage: 2.5 MG/KG;QD;PO
     Route: 048
     Dates: start: 20060501, end: 20060524
  3. INFLIXIMAB, RECOMBINANT (INFLIXIMAB, RECOMBINANT) LYOPHILIZED POWDER [Suspect]
     Indication: CROHN'S DISEASE
     Dosage: 400 MG;QD;IV
     Route: 042
     Dates: start: 20060501
  4. IBUPROFEN [Concomitant]
  5. ACTIFED /00005601/ [Concomitant]
  6. CENTRUM SILVER /01292501/ [Concomitant]
  7. HYDROCHLOROTHIAZIDE [Concomitant]
  8. IMODIUM A-D [Concomitant]
  9. PEPCID AC [Concomitant]
  10. ZYRTEC [Concomitant]

REACTIONS (1)
  - PANCREATITIS [None]
